FAERS Safety Report 18987830 (Version 1)
Quarter: 2021Q1

REPORT INFORMATION
  Report Type: Spontaneous
  Country: DE (occurrence: DE)
  Receive Date: 20210309
  Receipt Date: 20210309
  Transmission Date: 20210420
  Serious: Yes (Hospitalization)
  Sender: FDA-Public Use
  Company Number: DE-TEVA-2021-DE-1887298

PATIENT
  Age: 79 Year
  Sex: Female

DRUGS (10)
  1. PAROXETIN [Suspect]
     Active Substance: PAROXETINE HYDROCHLORIDE
     Dosage: 20 MILLIGRAM DAILY; 1?0?0?0,
  2. BISOPROLOL [Concomitant]
     Active Substance: BISOPROLOL
     Dosage: .5 DOSAGE FORMS DAILY; 5 MG, 0?0.5?0?0,
  3. PREGABALIN. [Concomitant]
     Active Substance: PREGABALIN
     Dosage: 50 MILLIGRAM DAILY; 1?0?1?0,
  4. EISEN(II) [Concomitant]
     Dosage: 100 MILLIGRAM DAILY; 0?1?0?0
  5. ACETYLSALICYLSAURE [Suspect]
     Active Substance: ASPIRIN
     Dosage: 200 MILLIGRAM DAILY; 1?0?1?0,
  6. METAMIZOL [Concomitant]
     Active Substance: METAMIZOLE SODIUM
     Dosage: DROPS , 30?30?30?0,
  7. MAGNESIUM [Concomitant]
     Active Substance: MAGNESIUM
     Dosage: 400 MG / 3X A WEEK, TUE THU SUN,
  8. TRAMADOL. [Concomitant]
     Active Substance: TRAMADOL
     Dosage: REQUIRES 1 TBL Z N,
  9. TORASEMID [Concomitant]
     Active Substance: TORSEMIDE
     Dosage: 10 MILLIGRAM DAILY; 1?0?0?0,
  10. TRAMADOL. [Concomitant]
     Active Substance: TRAMADOL
     Dosage: 1 DOSAGE FORMS DAILY; 0?0?1?0,

REACTIONS (2)
  - Anaemia [Recovering/Resolving]
  - Fatigue [Recovering/Resolving]
